FAERS Safety Report 8946855 (Version 3)
Quarter: 2013Q3

REPORT INFORMATION
  Report Type: Spontaneous
  Country: CA (occurrence: CA)
  Receive Date: 20121205
  Receipt Date: 20130701
  Transmission Date: 20140515
  Serious: Yes (Other)
  Sender: FDA-Public Use
  Company Number: CHPA2012CA024169

PATIENT
  Age: 79 Year
  Sex: Female

DRUGS (2)
  1. EXCEDRIN TENSION HEADACHE [Suspect]
     Indication: HEADACHE
     Dosage: 1 TO 2 DF, QD PRN
     Route: 048
     Dates: start: 2004
  2. AMITRIPTYLINE [Concomitant]
     Indication: HEADACHE

REACTIONS (6)
  - Bladder prolapse [Recovered/Resolved]
  - Varicose vein [Not Recovered/Not Resolved]
  - Headache [Unknown]
  - Disease recurrence [Unknown]
  - Underdose [Unknown]
  - Incorrect drug administration duration [Unknown]
